FAERS Safety Report 7941374-4 (Version None)
Quarter: 2011Q4

REPORT INFORMATION
  Report Type: 
  Country: None (occurrence: None)
  Receive Date: 20111128
  Receipt Date: 20111116
  Transmission Date: 20120403
  Serious: Yes (Other)
  Sender: FDA-Public Use
  Company Number: US-VIROPHARMA INCORPORATED-20111107CINRY2434

PATIENT
  Age: 71 Year
  Sex: Female

DRUGS (12)
  1. CINRYZE [Suspect]
     Dates: start: 20110812
  2. FENTANYL [Concomitant]
     Indication: PRODUCT USED FOR UNKNOWN INDICATION
     Route: 061
  3. AMLODIPINE [Concomitant]
     Indication: PRODUCT USED FOR UNKNOWN INDICATION
     Dosage: UNKNOWN
     Route: 048
     Dates: start: 20110701
  4. FENTANYL [Concomitant]
     Route: 061
  5. RANITIDINE [Concomitant]
     Indication: PROPHYLAXIS
     Route: 048
     Dates: start: 20110812
  6. EPIPEN [Concomitant]
     Indication: SWELLING
     Dates: start: 20110812
  7. BENADRYL [Suspect]
     Indication: PROPHYLAXIS
     Dates: start: 20110812
  8. ALLEGRA [Concomitant]
     Indication: PROPHYLAXIS
     Route: 048
     Dates: start: 20110818
  9. CINRYZE [Suspect]
     Indication: HEREDITARY ANGIOEDEMA
     Dates: start: 20110812
  10. BENADRYL [Suspect]
     Indication: URTICARIA
     Dates: start: 20110812, end: 20110812
  11. BENADRYL [Suspect]
     Dates: start: 20110816, end: 20110816
  12. ZYRTEC [Concomitant]
     Indication: URTICARIA
     Dates: start: 20110812

REACTIONS (5)
  - ANAPHYLACTIC REACTION [None]
  - INCORRECT DRUG ADMINISTRATION RATE [None]
  - MUSCLE SPASMS [None]
  - INFUSION RELATED REACTION [None]
  - URTICARIA [None]
